FAERS Safety Report 6595973-5 (Version None)
Quarter: 2010Q1

REPORT INFORMATION
  Report Type: 
  Country: None (occurrence: None)
  Receive Date: 20100223
  Receipt Date: 20100218
  Transmission Date: 20100710
  Serious: Yes (Life-Threatening, Hospitalization)
  Sender: FDA-Public Use
  Company Number: JP-NOVOPROD-304656

PATIENT
  Age: 78 Year
  Sex: Male
  Weight: 92 kg

DRUGS (11)
  1. LEVEMIR [Suspect]
     Indication: TYPE 2 DIABETES MELLITUS
     Dosage: 26 IU, QD
     Route: 058
     Dates: start: 20090126
  2. NOVORAPID CHU FLEXPEN [Suspect]
     Indication: TYPE 2 DIABETES MELLITUS
     Dosage: UNK
     Route: 058
  3. NORVASC [Concomitant]
     Indication: HYPERTENSION
     Dosage: 10MG/PO
     Route: 048
  4. MAINTATE [Concomitant]
     Indication: HYPERTENSION
     Dosage: 1TAB/PO
     Route: 048
  5. OLMETEC [Concomitant]
     Indication: HYPERTENSION
     Dosage: 20 MG, UNK
     Route: 048
  6. ALOSITOL [Concomitant]
     Indication: HYPERURICAEMIA
     Dosage: 100 MG, UNK
     Route: 048
  7. LIPITOR [Concomitant]
     Indication: HYPERLIPIDAEMIA
     Dosage: 10 MG, UNK
     Route: 048
  8. WARFARIN SODIUM [Concomitant]
     Indication: MYOCARDIAL INFARCTION
     Dosage: 8 MG, UNK
     Route: 048
  9. ASPIRIN [Concomitant]
     Indication: MYOCARDIAL INFARCTION
     Dosage: 100 MG, UNK
     Route: 048
  10. SIGMART [Concomitant]
     Indication: MYOCARDIAL INFARCTION
     Dosage: 15 MG, UNK
  11. ITOROL [Concomitant]
     Indication: MYOCARDIAL INFARCTION
     Dosage: 20 MG, UNK
     Route: 048

REACTIONS (1)
  - CARDIAC ARREST [None]
